FAERS Safety Report 20874894 (Version 1)
Quarter: 2022Q2

REPORT INFORMATION
  Report Type: Spontaneous
  Country: US (occurrence: US)
  Receive Date: 20220526
  Receipt Date: 20220526
  Transmission Date: 20220720
  Serious: Yes (Hospitalization)
  Sender: FDA-Public Use
  Company Number: None

PATIENT
  Age: 50 Year
  Sex: Male

DRUGS (2)
  1. VANCOMYCIN [Suspect]
     Active Substance: VANCOMYCIN
     Indication: Arthritis bacterial
     Dosage: UNK
     Route: 065
  2. CALCIUM SULFATE [Concomitant]
     Active Substance: CALCIUM SULFATE
     Indication: Arthritis bacterial
     Dosage: 20CC BEADS WERE IMPLANTED
     Route: 065

REACTIONS (3)
  - Acute kidney injury [Unknown]
  - Toxicity to various agents [Unknown]
  - Drug ineffective [Unknown]
